FAERS Safety Report 7362195-X (Version None)
Quarter: 2011Q1

REPORT INFORMATION
  Report Type: 
  Country: None (occurrence: None)
  Receive Date: 20110315
  Receipt Date: 20110315
  Transmission Date: 20110831
  Serious: No
  Sender: FDA-Public Use
  Company Number: None

PATIENT
  Age: 45 Year
  Sex: Female
  Weight: 58.9676 kg

DRUGS (1)
  1. ZOLPIDEM [Suspect]
     Indication: INSOMNIA
     Dosage: ZOLPIDEM 10MG QHS ORAL
     Route: 048
     Dates: start: 20110204

REACTIONS (2)
  - PRODUCT SUBSTITUTION ISSUE [None]
  - SLEEP DISORDER [None]
